FAERS Safety Report 7641545-0 (Version None)
Quarter: 2011Q3

REPORT INFORMATION
  Report Type: 
  Country: None (occurrence: None)
  Receive Date: 20110728
  Receipt Date: 20110719
  Transmission Date: 20111222
  Serious: Yes (Other)
  Sender: FDA-Public Use
  Company Number: IE-JNJFOC-20110303819

PATIENT
  Sex: Male

DRUGS (3)
  1. METHOTREXATE [Concomitant]
  2. REMICADE [Suspect]
     Indication: SERONEGATIVE ARTHRITIS
     Dosage: MAINTENANCE TREATMENT X 10 YEARS
     Route: 042
  3. PREDNISOLONE [Concomitant]

REACTIONS (2)
  - HERPES ZOSTER OPHTHALMIC [None]
  - HERPES ZOSTER [None]
